FAERS Safety Report 7718248-7 (Version None)
Quarter: 2011Q3

REPORT INFORMATION
  Report Type: 
  Country: None (occurrence: None)
  Receive Date: 20110830
  Receipt Date: 20110824
  Transmission Date: 20111222
  Serious: Yes (Other)
  Sender: FDA-Public Use
  Company Number: FR-ROCHE-796149

PATIENT
  Sex: Male

DRUGS (7)
  1. COPEGUS [Suspect]
     Route: 048
     Dates: start: 20110426
  2. PEGASYS [Suspect]
     Route: 058
     Dates: start: 20070901, end: 20090201
  3. PEGASYS [Suspect]
     Route: 058
     Dates: start: 20110426
  4. COPEGUS [Suspect]
     Route: 048
     Dates: start: 20070901, end: 20090201
  5. INCIVO [Suspect]
     Route: 048
     Dates: start: 20110426, end: 20110718
  6. GLUCOPHAGE [Concomitant]
  7. COZAAR [Concomitant]

REACTIONS (1)
  - VIITH NERVE PARALYSIS [None]
